FAERS Safety Report 16711184 (Version 1)
Quarter: 2019Q4

REPORT INFORMATION
  Report Type: Spontaneous
  Country: US (occurrence: US)
  Receive Date: 20190815
  Receipt Date: 20190815
  Transmission Date: 20200122
  Serious: Yes (Hospitalization)
  Sender: FDA-Public Use
  Company Number: None

PATIENT
  Age: 83 Year
  Sex: Male
  Weight: 115 kg

DRUGS (1)
  1. BCG [Suspect]
     Active Substance: BCG VACCINE
     Indication: BLADDER CANCER
     Route: 043

REACTIONS (7)
  - Mycobacterium tuberculosis complex test positive [None]
  - Biopsy bone marrow abnormal [None]
  - Granuloma [None]
  - Pancytopenia [None]
  - Thrombocytopenia [None]
  - Neutropenia [None]
  - Bacteraemia [None]

NARRATIVE: CASE EVENT DATE: 20190410
